FAERS Safety Report 21701118 (Version 2)
Quarter: 2023Q1

REPORT INFORMATION
  Report Type: Spontaneous
  Country: US (occurrence: US)
  Receive Date: 20221208
  Receipt Date: 20230103
  Transmission Date: 20230418
  Serious: No
  Sender: FDA-Public Use
  Company Number: US-PFIZER INC-PV202200118756

PATIENT
  Age: 81 Year
  Sex: Female
  Weight: 89.025 kg

DRUGS (1)
  1. PREMARIN [Suspect]
     Active Substance: ESTROGENS, CONJUGATED
     Indication: Hysterectomy
     Dosage: 0.3 MG
     Dates: start: 202209

REACTIONS (2)
  - Hot flush [Unknown]
  - Wrong strength [Unknown]
